FAERS Safety Report 24800183 (Version 1)
Quarter: 2025Q1

REPORT INFORMATION
  Report Type: Spontaneous
  Country: US (occurrence: None)
  Receive Date: 20250101
  Receipt Date: 20250101
  Transmission Date: 20250408
  Serious: Yes (Disabling)
  Sender: FDA-CTU
  Company Number: None

PATIENT
  Age: 18 Month
  Sex: Male
  Weight: 8.55 kg

DRUGS (2)
  1. MIRALAX [Suspect]
     Active Substance: POLYETHYLENE GLYCOL 3350
     Indication: Constipation
     Route: 048
     Dates: start: 20240201, end: 20250101
  2. MIRALAX [Suspect]
     Active Substance: POLYETHYLENE GLYCOL 3350
     Indication: Intestinal malrotation

REACTIONS (4)
  - Aphasia [None]
  - Disturbance in attention [None]
  - Irritability [None]
  - Cognitive disorder [None]

NARRATIVE: CASE EVENT DATE: 20241224
